FAERS Safety Report 4505142-8 (Version None)
Quarter: 2004Q4

REPORT INFORMATION
  Report Type: 
  Country: None (occurrence: None)
  Receive Date: 20041117
  Receipt Date: 20041117
  Transmission Date: 20050328
  Serious: Yes (Hospitalization)
  Sender: FDA-Public Use
  Company Number: None

PATIENT
  Age: 82 Year
  Sex: Male

DRUGS (6)
  1. OXYBUTYNIN [Suspect]
     Indication: BLADDER SPASM
     Dosage: 5 MG BID
     Dates: start: 20040614
  2. LORTAB [Concomitant]
  3. SINEMET [Concomitant]
  4. BISACODYL [Concomitant]
  5. CLOPIDOGREL [Concomitant]
  6. GOSERELIN [Concomitant]

REACTIONS (1)
  - MENTAL STATUS CHANGES [None]
